FAERS Safety Report 18192025 (Version 4)
Quarter: 2020Q4

REPORT INFORMATION
  Report Type: Other
  Country: US (occurrence: US)
  Receive Date: 20200825
  Receipt Date: 20201202
  Transmission Date: 20210113
  Serious: Yes (Hospitalization, Other)
  Sender: FDA-Public Use
  Company Number: US-ROCHE-2662282

PATIENT
  Age: 50 Year
  Sex: Female
  Weight: 127.12 kg

DRUGS (3)
  1. OCREVUS [Suspect]
     Active Substance: OCRELIZUMAB
     Route: 042
     Dates: start: 20190808
  2. OCREVUS [Suspect]
     Active Substance: OCRELIZUMAB
     Route: 042
     Dates: start: 201910
  3. OCREVUS [Suspect]
     Active Substance: OCRELIZUMAB
     Indication: RELAPSING-REMITTING MULTIPLE SCLEROSIS
     Dosage: PRESCRIBED WITH 300 MG IV FOLLOWED BY A SECOND 300 MG IV 2 WKS LATER THEN 600 MG IV Q 6 MONTHS START
     Route: 042
     Dates: start: 201908

REACTIONS (6)
  - Urinary tract infection [Recovered/Resolved]
  - COVID-19 [Not Recovered/Not Resolved]
  - Type 2 diabetes mellitus [Unknown]
  - Multiple sclerosis relapse [Recovered/Resolved]
  - Cerebrovascular accident [Recovered/Resolved]
  - Seizure [Recovered/Resolved]

NARRATIVE: CASE EVENT DATE: 201911
